FAERS Safety Report 4993276-3 (Version None)
Quarter: 2006Q1

REPORT INFORMATION
  Report Type: 
  Country: None (occurrence: None)
  Receive Date: 20060314
  Receipt Date: 20050629
  Transmission Date: 20060701
  Serious: Yes (Other)
  Sender: FDA-Public Use
  Company Number: 200512027BCC

PATIENT
  Age: 27 Year
  Sex: Female
  Weight: 101.1521 kg

DRUGS (1)
  1. ALEVE (CAPLET) [Suspect]
     Indication: HEADACHE
     Dosage: 440 MG, ONCE, ORAL
     Route: 048
     Dates: start: 20050512

REACTIONS (7)
  - DYSPNOEA [None]
  - HEART RATE INCREASED [None]
  - HYPERSENSITIVITY [None]
  - NERVOUSNESS [None]
  - PRURITUS [None]
  - RASH MACULAR [None]
  - SOMNOLENCE [None]
